FAERS Safety Report 6610785-1 (Version None)
Quarter: 2010Q1

REPORT INFORMATION
  Report Type: 
  Country: None (occurrence: None)
  Receive Date: 20100302
  Receipt Date: 20100226
  Transmission Date: 20100710
  Serious: Yes (Hospitalization)
  Sender: FDA-Public Use
  Company Number: B0636357A

PATIENT
  Sex: Male

DRUGS (9)
  1. AUGMENTIN [Suspect]
     Indication: DRUG USE FOR UNKNOWN INDICATION
     Dosage: 1G PER DAY
     Route: 048
     Dates: start: 20090313, end: 20090314
  2. KARDEGIC [Concomitant]
     Dosage: 75MG UNKNOWN
     Route: 065
  3. CORDARONE [Concomitant]
     Dosage: 200MG UNKNOWN
     Route: 065
  4. VASTAREL [Concomitant]
     Dosage: 35MG UNKNOWN
     Route: 065
  5. LASILIX [Concomitant]
     Dosage: 40MG UNKNOWN
     Route: 065
  6. DIFFU K [Concomitant]
     Route: 065
  7. FORLAX [Concomitant]
     Route: 065
  8. XYZAL [Concomitant]
     Route: 065
  9. METHOTREXATE [Concomitant]
     Dosage: 2.5MG UNKNOWN
     Route: 065

REACTIONS (3)
  - DERMATITIS EXFOLIATIVE [None]
  - PRURITUS [None]
  - SKIN LESION [None]
